FAERS Safety Report 4700501-2 (Version None)
Quarter: 2005Q2

REPORT INFORMATION
  Report Type: 
  Country: None (occurrence: None)
  Receive Date: 20050624
  Receipt Date: 20050620
  Transmission Date: 20051028
  Serious: Yes (Death)
  Sender: FDA-Public Use
  Company Number: 2005-127999-NL

PATIENT
  Age: 77 Year
  Sex: Male

DRUGS (22)
  1. DEXAMETHASONE [Suspect]
     Dosage: 2 MG
  2. IPRATROPIUM BROMIDE AND ALBUTEROL SULFATE [Suspect]
     Dosage: RESPIRATORY (INHALATION)
  3. TIOTROPIUM BROMIDE (SEE ATTACHED PAGES FOR ADDITIONAL SUSPECT DRUGS) [Suspect]
     Dosage: 18 UG, RESPIRATORY (INHALATION)
  4. SALBUTAMOL (SEE ATTACHED PAGES FOR ADDITIONAL SUSPECT DRUGS) [Suspect]
     Dosage: 200 UG BID, RESPIRATORY (INHALATION)
  5. ACETYLSALICYLIC ACID (SEE ATTACHED PAGES FOR ADDITIONAL SUSPECT DRUGS) [Suspect]
     Dosage: 75 MG
  6. ATORVASTATIN (SEE ATTACHED PAGES FOR ADDITIONAL SUSPECT DRUGS) [Suspect]
     Dosage: 10 MG
  7. BECLOMETHASONE DIPROPIONATE [Suspect]
     Dosage: 100 UG BID, RESPIRATORY (INHALATION)
  8. FRUMIL (SEE ATTACHED PAGES FOR ADDITIONAL SUSPECT DRUGS) [Suspect]
     Dosage: DF
  9. DILTIAZEM [Suspect]
     Dosage: 60 MG QD
  10. DOSULEPIN (SEE ATTACHED PAGES FOR ADDITIONAL SUSPECT DRUGS) [Suspect]
     Dosage: 75 MG QD
  11. FUROSEMIDE [Suspect]
     Dosage: 80 MG
  12. GAVISCON [Suspect]
     Dosage: 10 ML QID
  13. LACTULOSE [Suspect]
     Dosage: 670 MG/ML
  14. LANSOPRAZOLE [Suspect]
     Dosage: 30 MG QD
  15. METOCLOPRAMIDE [Suspect]
     Dosage: 10 MG TID
  16. GLYCERYL TRINITRATE (SEE ATTACHED PAGES FOR ADDITIONAL SUSPECT DRUGS) [Suspect]
     Dosage: 400 MG
  17. LEVOMEPROMAZINE (SEE ATTACHED PAGES FOR ADDITIONAL SUSPECT DRUGS) [Suspect]
     Dosage: 25 MG QID
  18. OXYCODONE (SEE ATTACHED PAGES FOR ADDITIONAL SUSPECT DRUGS) [Suspect]
     Dosage: 20 MG BID
  19. OXYGEN (SEE ATTACHED PAGES FOR ADDITIONAL SUSPECT DRUGS) [Suspect]
     Dosage: DF, RESPIRATORY (INHALATION)
  20. SPIRONOLACTONE (SEE ATTACHED PAGES FOR ADDITIONAL SUSPECT DRUGS) [Suspect]
     Dosage: 50 MG
  21. SYMBICORT (SEE ATTACHED PAGES FOR ADDITIONAL SUSPECT DRUGS) [Suspect]
     Dosage: 2 PUFF BID, RESPIRATORY (INHALATION)
  22. TEMAZEPAM [Suspect]
     Dosage: 10 MG BID

REACTIONS (2)
  - LUNG NEOPLASM MALIGNANT [None]
  - MESOTHELIOMA [None]
